FAERS Safety Report 9161424 (Version 2)
Quarter: 2013Q3

REPORT INFORMATION
  Report Type: Spontaneous
  Country: US (occurrence: US)
  Receive Date: 20130313
  Receipt Date: 20130710
  Transmission Date: 20140515
  Serious: No
  Sender: FDA-Public Use
  Company Number: US-009507513-1303USA006235

PATIENT
  Age: 47 Year
  Sex: Female
  Weight: 63.49 kg

DRUGS (7)
  1. CLARITIN-D-24 [Suspect]
     Indication: MEDICAL OBSERVATION
  2. CLARITIN-D-24 [Suspect]
     Indication: RHINORRHOEA
  3. CLARITIN-D-24 [Suspect]
     Indication: EYE PRURITUS
  4. CLARITIN-D-24 [Suspect]
     Indication: SNEEZING
  5. ESTROPIPATE [Concomitant]
     Indication: MENOPAUSE
     Dosage: UNK, UNKNOWN
  6. PROGESTERONE [Concomitant]
     Indication: MENOPAUSE
     Dosage: UNK, UNKNOWN
  7. CLARITIN-D-24 [Suspect]
     Indication: HYPERSENSITIVITY
     Dosage: 10 MG, ONCE
     Route: 048
     Dates: start: 20130223

REACTIONS (1)
  - Drug ineffective [Unknown]
